FAERS Safety Report 17810110 (Version 1)
Quarter: 2020Q2

REPORT INFORMATION
  Report Type: Spontaneous
  Country: GB (occurrence: CN)
  Receive Date: 20200521
  Receipt Date: 20200521
  Transmission Date: 20200714
  Serious: Yes (Other)
  Sender: FDA-Public Use
  Company Number: CN-ASTELLAS-2020US017013

PATIENT
  Age: 52 Year
  Sex: Male

DRUGS (17)
  1. AVASTIN [Suspect]
     Active Substance: BEVACIZUMAB
     Route: 065
     Dates: start: 20180502
  2. AVASTIN [Suspect]
     Active Substance: BEVACIZUMAB
     Route: 065
     Dates: start: 20180524
  3. PEMETREXED. [Concomitant]
     Active Substance: PEMETREXED
     Dosage: 950 MG, UNKNOWN FREQ.(DAY 2)
     Route: 065
     Dates: start: 20180524
  4. CISPLATIN. [Concomitant]
     Active Substance: CISPLATIN
     Dosage: 45 MG, UNKNOWN FREQ.(DAY 1-3)
     Route: 065
     Dates: start: 20180410
  5. AVASTIN [Suspect]
     Active Substance: BEVACIZUMAB
     Indication: LUNG ADENOCARCINOMA
     Route: 065
     Dates: start: 20180319
  6. AVASTIN [Suspect]
     Active Substance: BEVACIZUMAB
     Route: 065
     Dates: start: 20180410
  7. PEMETREXED. [Concomitant]
     Active Substance: PEMETREXED
     Dosage: 950 MG, UNKNOWN FREQ.(DAY 1)
     Route: 065
     Dates: start: 20180410
  8. PEMETREXED. [Concomitant]
     Active Substance: PEMETREXED
     Dosage: UNK UNK, UNKNOWN FREQ.
     Route: 065
     Dates: start: 20180614
  9. TARCEVA [Suspect]
     Active Substance: ERLOTINIB HYDROCHLORIDE
     Indication: LUNG ADENOCARCINOMA
     Route: 048
     Dates: start: 20140725
  10. PEMETREXED. [Concomitant]
     Active Substance: PEMETREXED
     Indication: LUNG ADENOCARCINOMA
     Dosage: 950 MG, UNKNOWN FREQ.(DAY 1)
     Route: 065
     Dates: start: 20180319
  11. CISPLATIN. [Concomitant]
     Active Substance: CISPLATIN
     Dosage: 45 MG, UNKNOWN FREQ.(DAY 1)
     Route: 065
     Dates: start: 20180502
  12. OSIMERTINIB. [Concomitant]
     Active Substance: OSIMERTINIB
     Indication: LUNG ADENOCARCINOMA
     Route: 048
     Dates: start: 20160505
  13. CISPLATIN. [Concomitant]
     Active Substance: CISPLATIN
     Dosage: 45 MG, UNKNOWN FREQ.(DAY 1)
     Route: 065
     Dates: start: 20180524
  14. AVASTIN [Suspect]
     Active Substance: BEVACIZUMAB
     Dosage: UNK UNK, UNKNOWN FREQ.
     Route: 065
     Dates: start: 20180614, end: 20190117
  15. OSIMERTINIB. [Concomitant]
     Active Substance: OSIMERTINIB
     Route: 048
     Dates: start: 20190214
  16. PEMETREXED. [Concomitant]
     Active Substance: PEMETREXED
     Dosage: 950 MG, UNKNOWN FREQ.(DAY 1)
     Route: 065
     Dates: start: 20180502
  17. CISPLATIN. [Concomitant]
     Active Substance: CISPLATIN
     Indication: LUNG ADENOCARCINOMA
     Dosage: 45 MG, UNKNOWN FREQ.(DAY 1-3)
     Route: 065
     Dates: start: 20180319

REACTIONS (3)
  - Proteinuria [Unknown]
  - Bone marrow failure [Recovered/Resolved]
  - Blood pressure increased [Recovered/Resolved]
